FAERS Safety Report 20946102 (Version 1)
Quarter: 2022Q2

REPORT INFORMATION
  Report Type: Spontaneous
  Country: TW (occurrence: TW)
  Receive Date: 20220610
  Receipt Date: 20220610
  Transmission Date: 20220720
  Serious: Yes (Death, Other)
  Sender: FDA-Public Use
  Company Number: TW-BAYER-2022A080185

PATIENT
  Age: 79 Year
  Sex: Female

DRUGS (4)
  1. STIVARGA [Suspect]
     Active Substance: REGORAFENIB
     Indication: Rectal adenocarcinoma
     Dosage: 2 DF, QD
     Dates: start: 20160518, end: 20160607
  2. STIVARGA [Suspect]
     Active Substance: REGORAFENIB
     Indication: Rectal adenocarcinoma
     Dosage: 3 DF, QD
     Dates: start: 20160615, end: 20160705
  3. STIVARGA [Suspect]
     Active Substance: REGORAFENIB
     Indication: Rectal adenocarcinoma
     Dosage: EVERY CYCLE TOOK 3DF DAILY IN THE FIRST WEEK, 4 DF DAILY IN THE SECOND WEEK AND 3 DF DAILY IN THE TH
     Dates: start: 20160713, end: 20170314
  4. STIVARGA [Suspect]
     Active Substance: REGORAFENIB
     Indication: Rectal adenocarcinoma
     Dosage: STANDARD FULL DOSE
     Dates: start: 20170315, end: 201711

REACTIONS (8)
  - Death [Fatal]
  - Metastases to lung [None]
  - Metastases to central nervous system [None]
  - Diarrhoea [None]
  - Palmar-plantar erythrodysaesthesia syndrome [None]
  - Fatigue [None]
  - Hypertension [None]
  - Off label use [None]

NARRATIVE: CASE EVENT DATE: 20160518
